FAERS Safety Report 5290441-5 (Version None)
Quarter: 2007Q3

REPORT INFORMATION
  Report Type: 
  Country: None (occurrence: None)
  Receive Date: 20070409
  Receipt Date: 20070327
  Transmission Date: 20080115
  Serious: Yes (Hospitalization)
  Sender: FDA-Public Use
  Company Number: PHNU2007DE01384

PATIENT
  Sex: Male

DRUGS (1)
  1. ZELNORM [Suspect]
     Indication: GASTROINTESTINAL MOTILITY DISORDER
     Dates: start: 20050101

REACTIONS (4)
  - ABDOMINAL PAIN [None]
  - GASTROINTESTINAL MOTILITY DISORDER [None]
  - GASTROOESOPHAGEAL REFLUX DISEASE [None]
  - MYOPATHY [None]
